FAERS Safety Report 10429904 (Version 1)
Quarter: 2014Q3

REPORT INFORMATION
  Report Type: Spontaneous
  Country: US (occurrence: None)
  Receive Date: 20140903
  Receipt Date: 20140903
  Transmission Date: 20150326
  Serious: Yes (Life-Threatening, Other)
  Sender: FDA-Public Use
  Company Number: None

PATIENT
  Age: 50 Year
  Sex: Female
  Weight: 99.79 kg

DRUGS (7)
  1. LYRICA [Suspect]
     Active Substance: PREGABALIN
     Indication: DIABETES MELLITUS
     Dosage: PILL
     Dates: start: 201201, end: 201206
  2. JUICING LIFE [Concomitant]
  3. LYRICA [Suspect]
     Active Substance: PREGABALIN
     Indication: NEURALGIA
     Dosage: PILL
     Dates: start: 201201, end: 201206
  4. LYRICA [Concomitant]
     Active Substance: PREGABALIN
  5. LANTUS INSULIN + NOVOLOG [Concomitant]
  6. OMMP F CETIFIED MEDICINE [Concomitant]
  7. LYRICA [Suspect]
     Active Substance: PREGABALIN
     Indication: PAIN IN EXTREMITY
     Dosage: PILL
     Dates: start: 201201, end: 201206

REACTIONS (7)
  - Feeling of relaxation [None]
  - Drug dependence [None]
  - Chills [None]
  - Hyperhidrosis [None]
  - Weight decreased [None]
  - Feeling abnormal [None]
  - Somnolence [None]

NARRATIVE: CASE EVENT DATE: 201201
